APPROVED DRUG PRODUCT: CUTIVATE
Active Ingredient: FLUTICASONE PROPIONATE
Strength: 0.005% **Federal Register determination that product was not discontinued or withdrawn for safety or effectiveness reasons**
Dosage Form/Route: OINTMENT;TOPICAL
Application: N019957 | Product #001
Applicant: FOUGERA PHARMACEUTICALS INC
Approved: Dec 14, 1990 | RLD: Yes | RS: No | Type: DISCN